FAERS Safety Report 25363555 (Version 1)
Quarter: 2025Q2

REPORT INFORMATION
  Report Type: Spontaneous
  Country: US (occurrence: None)
  Receive Date: 20250527
  Receipt Date: 20250527
  Transmission Date: 20250716
  Serious: Yes (Disabling)
  Sender: FDA-CTU
  Company Number: None

PATIENT
  Sex: Female
  Weight: 63 kg

DRUGS (9)
  1. CETIRIZINE HCL [Suspect]
     Active Substance: CETIRIZINE HYDROCHLORIDE
     Indication: Rhinitis allergic
     Dosage: FREQUENCY : AT BEDTIME;?
     Route: 048
     Dates: start: 20000801, end: 20250309
  2. Qvar beclomethasone inhaler [Concomitant]
  3. FLOVENT [Concomitant]
     Active Substance: FLUTICASONE PROPIONATE
  4. ALBUTEROL [Concomitant]
     Active Substance: ALBUTEROL
  5. Immunotherapy injections [Concomitant]
  6. VITAMINS [Concomitant]
     Active Substance: VITAMINS
  7. HERBALS\WITHANIA SOMNIFERA ROOT [Concomitant]
     Active Substance: HERBALS\WITHANIA SOMNIFERA ROOT
  8. MAGNESIUM [Concomitant]
     Active Substance: MAGNESIUM
  9. glycinate [Concomitant]

REACTIONS (5)
  - Contusion [None]
  - Skin lesion [None]
  - Pruritus [None]
  - Withdrawal syndrome [None]
  - Disability [None]
